FAERS Safety Report 8442769-5 (Version None)
Quarter: 2012Q2

REPORT INFORMATION
  Report Type: 
  Country: None (occurrence: None)
  Receive Date: 20120615
  Receipt Date: 20120610
  Transmission Date: 20120825
  Serious: Yes (Other)
  Sender: FDA-Public Use
  Company Number: QA-ROCHE-1078650

PATIENT
  Sex: Female

DRUGS (4)
  1. LEVOCETIRIZINE DIHYDROCHLORIDE [Concomitant]
     Route: 065
  2. FEXOFENADINE [Concomitant]
     Route: 065
  3. OMALIZUMAB [Suspect]
     Indication: URTICARIA CHRONIC
     Route: 058
     Dates: start: 20110314
  4. OMALIZUMAB [Suspect]
     Route: 058
     Dates: start: 20110418

REACTIONS (1)
  - DIARRHOEA [None]
